FAERS Safety Report 5153980-3 (Version None)
Quarter: 2006Q4

REPORT INFORMATION
  Report Type: 
  Country: None (occurrence: None)
  Receive Date: 20061120
  Receipt Date: 20061025
  Transmission Date: 20070319
  Serious: Yes (Other)
  Sender: FDA-Public Use
  Company Number: US-GLAXOSMITHKLINE-A0624933A

PATIENT
  Age: 49 Year
  Sex: Female
  Weight: 72.7 kg

DRUGS (5)
  1. ADVAIR DISKUS 100/50 [Suspect]
     Indication: ASTHMA
     Route: 055
     Dates: start: 20030901, end: 20061001
  2. NEXIUM [Concomitant]
     Dosage: 40MG IN THE MORNING
     Route: 048
     Dates: start: 20030901
  3. AVAPRO [Concomitant]
     Indication: HYPERTENSION
     Dosage: 150MG IN THE MORNING
     Route: 048
     Dates: start: 20030901
  4. SINGULAIR [Concomitant]
     Indication: ASTHMA
     Dosage: 10MG AT NIGHT
     Route: 048
     Dates: start: 20060401
  5. DUONEB [Concomitant]
     Indication: ASTHMA
     Route: 055
     Dates: start: 20041001

REACTIONS (10)
  - CHEST DISCOMFORT [None]
  - COUGH [None]
  - DYSPNOEA EXERTIONAL [None]
  - LUNG DISORDER [None]
  - NON-CARDIAC CHEST PAIN [None]
  - PHARYNGOLARYNGEAL PAIN [None]
  - PLEURISY [None]
  - PLEURITIC PAIN [None]
  - PULMONARY CONGESTION [None]
  - THROAT IRRITATION [None]
